FAERS Safety Report 8512014-0 (Version None)
Quarter: 2012Q2

REPORT INFORMATION
  Report Type: 
  Country: None (occurrence: None)
  Receive Date: 20120406
  Receipt Date: 20100324
  Transmission Date: 20120825
  Serious: Yes (Other)
  Sender: FDA-Public Use
  Company Number: PHEH2010US03296

PATIENT
  Age: 51 Year
  Sex: Female

DRUGS (2)
  1. TASIGNA [Suspect]
     Indication: CHROMOSOME ANALYSIS ABNORMAL
     Dosage: ORAL
     Route: 048
     Dates: start: 20100301
  2. TASIGNA [Suspect]
     Indication: CHRONIC MYELOID LEUKAEMIA
     Dosage: ORAL
     Route: 048
     Dates: start: 20100301

REACTIONS (1)
  - PANCREATITIS [None]
